FAERS Safety Report 21022378 (Version 2)
Quarter: 2022Q3

REPORT INFORMATION
  Report Type: Report from Study
  Country: CN (occurrence: CN)
  Receive Date: 20220629
  Receipt Date: 20220706
  Transmission Date: 20221027
  Serious: Yes (Hospitalization)
  Sender: FDA-Public Use
  Company Number: CN-NOVARTISPH-NVSC2022CN123890

PATIENT
  Age: 75 Year
  Sex: Male
  Weight: 46 kg

DRUGS (26)
  1. TISLELIZUMAB [Suspect]
     Active Substance: TISLELIZUMAB
     Indication: Non-small cell lung cancer
     Dosage: 200 MG, Q3W
     Route: 042
     Dates: start: 20211222
  2. TISLELIZUMAB [Suspect]
     Active Substance: TISLELIZUMAB
     Dosage: 200 MG
     Route: 042
     Dates: start: 20220111
  3. TISLELIZUMAB [Suspect]
     Active Substance: TISLELIZUMAB
     Dosage: 200 MG
     Route: 042
     Dates: start: 20220207
  4. TISLELIZUMAB [Suspect]
     Active Substance: TISLELIZUMAB
     Dosage: 200 MG
     Route: 042
     Dates: start: 20220301
  5. TISLELIZUMAB [Suspect]
     Active Substance: TISLELIZUMAB
     Dosage: 200 MG
     Route: 042
     Dates: start: 20220322
  6. TISLELIZUMAB [Suspect]
     Active Substance: TISLELIZUMAB
     Dosage: 200 MG
     Route: 042
     Dates: start: 20220414
  7. TISLELIZUMAB [Suspect]
     Active Substance: TISLELIZUMAB
     Dosage: 200 MG
     Route: 042
     Dates: start: 20220504
  8. TISLELIZUMAB [Suspect]
     Active Substance: TISLELIZUMAB
     Dosage: UNK
     Route: 042
     Dates: start: 20220526
  9. OCIPERLIMAB [Suspect]
     Active Substance: OCIPERLIMAB
     Indication: Non-small cell lung cancer
     Dosage: 900 MG, Q3W
     Route: 042
     Dates: start: 20211222
  10. OCIPERLIMAB [Suspect]
     Active Substance: OCIPERLIMAB
     Dosage: 900 MG
     Route: 042
     Dates: start: 20220111
  11. OCIPERLIMAB [Suspect]
     Active Substance: OCIPERLIMAB
     Dosage: 900 MG
     Route: 042
     Dates: start: 20220207
  12. OCIPERLIMAB [Suspect]
     Active Substance: OCIPERLIMAB
     Dosage: 900 MG
     Route: 042
     Dates: start: 20220301
  13. OCIPERLIMAB [Suspect]
     Active Substance: OCIPERLIMAB
     Dosage: 900 MG
     Route: 042
     Dates: start: 20220322
  14. OCIPERLIMAB [Suspect]
     Active Substance: OCIPERLIMAB
     Dosage: 900 MG
     Route: 042
     Dates: start: 20220414
  15. OCIPERLIMAB [Suspect]
     Active Substance: OCIPERLIMAB
     Dosage: 900 MG
     Route: 042
     Dates: start: 20220504
  16. OCIPERLIMAB [Suspect]
     Active Substance: OCIPERLIMAB
     Dosage: UNK
     Route: 042
     Dates: start: 20220526
  17. PEMETREXED [Suspect]
     Active Substance: PEMETREXED
     Indication: Non-small cell lung cancer
     Dosage: 500 MG, Q3W OR 737 MG
     Route: 042
     Dates: start: 20211222
  18. PEMETREXED [Suspect]
     Active Substance: PEMETREXED
     Dosage: 720 MG
     Route: 042
     Dates: start: 20220111
  19. PEMETREXED [Suspect]
     Active Substance: PEMETREXED
     Dosage: 740 MG
     Route: 042
     Dates: start: 20220207
  20. PEMETREXED [Suspect]
     Active Substance: PEMETREXED
     Dosage: 749 MG
     Route: 042
     Dates: start: 20220301
  21. PEMETREXED [Suspect]
     Active Substance: PEMETREXED
     Dosage: 749 MG
     Route: 042
     Dates: start: 20220322
  22. PEMETREXED [Suspect]
     Active Substance: PEMETREXED
     Dosage: 737 MG
     Route: 042
     Dates: start: 20220414
  23. PEMETREXED [Suspect]
     Active Substance: PEMETREXED
     Dosage: 749 MG
     Route: 042
     Dates: start: 20220504
  24. PEMETREXED [Suspect]
     Active Substance: PEMETREXED
     Dosage: UNK
     Route: 042
     Dates: start: 20220526
  25. FUROSEMIDE [Concomitant]
     Active Substance: FUROSEMIDE
     Indication: Product used for unknown indication
     Dosage: UNK
     Route: 065
     Dates: start: 20220504, end: 20220504
  26. ERYTHROPOIETIN [Concomitant]
     Active Substance: ERYTHROPOIETIN
     Indication: Product used for unknown indication
     Dosage: UNK
     Route: 065
     Dates: start: 20220509, end: 20220512

REACTIONS (2)
  - Oedema peripheral [Recovered/Resolved]
  - Decreased appetite [Recovered/Resolved]

NARRATIVE: CASE EVENT DATE: 20220520
